FAERS Safety Report 5786159-2 (Version None)
Quarter: 2008Q2

REPORT INFORMATION
  Report Type: 
  Country: None (occurrence: None)
  Receive Date: 20080624
  Receipt Date: 20080618
  Transmission Date: 20081010
  Serious: Yes (Hospitalization)
  Sender: FDA-Public Use
  Company Number: A0734381A

PATIENT
  Age: 66 Year
  Sex: Female
  Weight: 46.4 kg

DRUGS (8)
  1. WELLBUTRIN [Suspect]
     Indication: DRUG USE FOR UNKNOWN INDICATION
     Dosage: 150MG TWICE PER DAY
     Route: 048
     Dates: start: 20060907, end: 20060912
  2. INVESTIGATIONAL DRUG [Suspect]
     Indication: NON-SMALL CELL LUNG CANCER
     Dosage: 9.45MG CYCLIC
     Route: 058
     Dates: start: 20060720, end: 20070131
  3. CARBOPLATIN [Suspect]
     Indication: NON-SMALL CELL LUNG CANCER
     Route: 042
     Dates: start: 20060713, end: 20061109
  4. PACLITAXEL [Suspect]
     Indication: NON-SMALL CELL LUNG CANCER
     Dosage: 200MGM2 CYCLIC
     Route: 042
     Dates: start: 20060713, end: 20061109
  5. XANAX [Concomitant]
     Route: 048
  6. COMBIVENT [Concomitant]
     Route: 055
     Dates: start: 20050101
  7. CARDIZEM [Concomitant]
     Route: 048
     Dates: start: 20060601
  8. DESYREL [Concomitant]
     Route: 048
     Dates: start: 20050601

REACTIONS (4)
  - ANAEMIA [None]
  - ASTHENIA [None]
  - HYPOTENSION [None]
  - MENTAL STATUS CHANGES [None]
